FAERS Safety Report 23629629 (Version 2)
Quarter: 2024Q2

REPORT INFORMATION
  Report Type: Spontaneous
  Country: BR (occurrence: BR)
  Receive Date: 20240314
  Receipt Date: 20240411
  Transmission Date: 20240716
  Serious: No
  Sender: FDA-Public Use
  Company Number: BR-TOLMAR, INC.-24BR046674

PATIENT
  Age: 9 Year
  Sex: Female

DRUGS (4)
  1. ELIGARD [Suspect]
     Active Substance: LEUPROLIDE ACETATE
     Indication: Precocious puberty
     Dosage: 45 MILLIGRAM, Q 6 MONTH
     Dates: start: 20240201
  2. DEVICE [Suspect]
     Active Substance: DEVICE
     Indication: Precocious puberty
     Dosage: UNK
  3. TRIPTORELIN [Concomitant]
     Active Substance: TRIPTORELIN
     Indication: Product used for unknown indication
     Dosage: 11.25 MILLIGRAM, Q 3 MONTH
     Route: 030
     Dates: start: 20220701
  4. TRIPTORELIN [Concomitant]
     Active Substance: TRIPTORELIN
     Dosage: 22.5 MILLIGRAM, Q 6 MONTH
     Route: 030
     Dates: start: 20220701

REACTIONS (3)
  - Intercepted product preparation error [Recovered/Resolved]
  - Syringe issue [Recovered/Resolved]
  - Device leakage [Recovered/Resolved]

NARRATIVE: CASE EVENT DATE: 20240201
